FAERS Safety Report 11150607 (Version 4)
Quarter: 2016Q4

REPORT INFORMATION
  Report Type: Spontaneous
  Country: US (occurrence: US)
  Receive Date: 20150601
  Receipt Date: 20161004
  Transmission Date: 20170206
  Serious: No
  Sender: FDA-Public Use
  Company Number: US-ASTRAZENECA-2013SE46790

PATIENT
  Age: 76 Year
  Sex: Male
  Weight: 71.7 kg

DRUGS (16)
  1. BYETTA [Suspect]
     Active Substance: EXENATIDE
     Indication: TYPE 2 DIABETES MELLITUS
     Route: 058
  2. LOVASTATIN. [Concomitant]
     Active Substance: LOVASTATIN
  3. NEXIUM [Concomitant]
     Active Substance: ESOMEPRAZOLE MAGNESIUM
     Dosage: 5 YEARS AGO AS WELL
  4. METFORMIN [Concomitant]
     Active Substance: METFORMIN HYDROCHLORIDE
     Indication: TYPE 2 DIABETES MELLITUS
     Dosage: OCCLUSIVE DRESSING TECHNIQUE
  5. NIFEDIPINE. [Concomitant]
     Active Substance: NIFEDIPINE
  6. BYETTA [Suspect]
     Active Substance: EXENATIDE
     Indication: TYPE 2 DIABETES MELLITUS
     Route: 058
     Dates: end: 2013
  7. BYETTA [Suspect]
     Active Substance: EXENATIDE
     Indication: TYPE 2 DIABETES MELLITUS
     Dosage: 5 MCG PEN; 1.2 ML
     Route: 058
     Dates: start: 2013, end: 2013
  8. BYETTA [Suspect]
     Active Substance: EXENATIDE
     Indication: TYPE 2 DIABETES MELLITUS
     Dosage: 10 MCG PEN; 2.4 ML
     Route: 058
     Dates: start: 2015, end: 2015
  9. VICTOZA [Concomitant]
     Active Substance: LIRAGLUTIDE
  10. LISINOPRIL. [Suspect]
     Active Substance: LISINOPRIL
     Route: 048
  11. BYETTA [Suspect]
     Active Substance: EXENATIDE
     Indication: TYPE 2 DIABETES MELLITUS
     Route: 058
     Dates: start: 201504
  12. INSULIN [Concomitant]
     Active Substance: INSULIN NOS
     Indication: TYPE 2 DIABETES MELLITUS
  13. CLONIDINE. [Concomitant]
     Active Substance: CLONIDINE
  14. BYETTA [Suspect]
     Active Substance: EXENATIDE
     Indication: TYPE 2 DIABETES MELLITUS
     Route: 058
  15. BYETTA [Suspect]
     Active Substance: EXENATIDE
     Indication: TYPE 2 DIABETES MELLITUS
     Route: 058
     Dates: end: 20140411
  16. BYETTA [Suspect]
     Active Substance: EXENATIDE
     Indication: TYPE 2 DIABETES MELLITUS
     Dosage: 5 MCG PEN; 1.2 ML
     Route: 058
     Dates: start: 2015, end: 2015

REACTIONS (15)
  - Weight decreased [Recovered/Resolved]
  - Glycosylated haemoglobin decreased [Recovered/Resolved]
  - Intentional product misuse [Unknown]
  - Blood glucose abnormal [Unknown]
  - Dizziness [Unknown]
  - Hyperhidrosis [Unknown]
  - Drug dose omission [Unknown]
  - Weight increased [Unknown]
  - Decreased appetite [Not Recovered/Not Resolved]
  - Hypoglycaemia [Unknown]
  - Blood pressure increased [Unknown]
  - Nausea [Unknown]
  - Abdominal pain upper [Unknown]
  - Back pain [Unknown]
  - Vomiting [Unknown]

NARRATIVE: CASE EVENT DATE: 2013
